FAERS Safety Report 15227497 (Version 1)
Quarter: 2018Q4

REPORT INFORMATION
  Report Type: Spontaneous
  Country: AU (occurrence: AU)
  Receive Date: 20180801
  Receipt Date: 20180801
  Transmission Date: 20190204
  Serious: Yes (Hospitalization)
  Sender: FDA-Public Use
  Company Number: AU-MYLANLABS-2018M1056033

PATIENT
  Age: 59 Year
  Sex: Female

DRUGS (2)
  1. GENOX (TAMOXIFEN CITRATE) [Suspect]
     Active Substance: TAMOXIFEN CITRATE
     Dosage: UNK
     Dates: start: 20180711
  2. GENOX (TAMOXIFEN CITRATE) [Suspect]
     Active Substance: TAMOXIFEN CITRATE
     Indication: PRODUCT USED FOR UNKNOWN INDICATION
     Dosage: UNK

REACTIONS (5)
  - Flatulence [Recovering/Resolving]
  - Dehydration [Recovering/Resolving]
  - Diarrhoea [Recovering/Resolving]
  - Frequent bowel movements [Recovering/Resolving]
  - Abdominal discomfort [Recovering/Resolving]
